FAERS Safety Report 5739273-1 (Version None)
Quarter: 2008Q2

REPORT INFORMATION
  Report Type: 
  Country: None (occurrence: None)
  Receive Date: 20080515
  Receipt Date: 20080505
  Transmission Date: 20081010
  Serious: Yes (Hospitalization)
  Sender: FDA-Public Use
  Company Number: US-AMGEN-US278964

PATIENT
  Sex: Male

DRUGS (2)
  1. ENBREL [Suspect]
     Indication: RHEUMATOID ARTHRITIS
     Route: 058
     Dates: start: 20021220
  2. METHOTREXATE [Concomitant]
     Route: 048

REACTIONS (3)
  - ANAEMIA [None]
  - DIZZINESS [None]
  - SYNCOPE [None]
